FAERS Safety Report 12518045 (Version 4)
Quarter: 2017Q1

REPORT INFORMATION
  Report Type: Report from Study
  Country: BR (occurrence: BR)
  Receive Date: 20160630
  Receipt Date: 20170127
  Transmission Date: 20170428
  Serious: Yes (Other)
  Sender: FDA-Public Use
  Company Number: BR-JNJFOC-20160316903

PATIENT
  Sex: Female

DRUGS (10)
  1. OLCADIL [Concomitant]
     Active Substance: CLOXAZOLAM
     Route: 065
  2. LOSARTAN. [Concomitant]
     Active Substance: LOSARTAN
     Route: 065
  3. TECNOMET [Concomitant]
     Active Substance: METHOTREXATE
     Route: 065
  4. PROPRANOLOL [Concomitant]
     Active Substance: PROPRANOLOL HYDROCHLORIDE
     Route: 065
  5. PREDNISOLONE. [Concomitant]
     Active Substance: PREDNISOLONE
     Route: 065
  6. TRAMAL [Concomitant]
     Active Substance: TRAMADOL
     Route: 065
  7. NAPROXEN. [Concomitant]
     Active Substance: NAPROXEN
     Route: 065
  8. ENDOFOLIN [Concomitant]
     Active Substance: FOLIC ACID
     Route: 065
  9. SIMPONI [Suspect]
     Active Substance: GOLIMUMAB
     Indication: RHEUMATOID ARTHRITIS
     Route: 058
     Dates: start: 20151125
  10. MUSCULARE [Concomitant]
     Route: 065

REACTIONS (8)
  - Device malfunction [Unknown]
  - Drug ineffective [Unknown]
  - Spinal fracture [Unknown]
  - Osteitis [Unknown]
  - Arthralgia [Unknown]
  - Infection [Unknown]
  - Intervertebral disc protrusion [Unknown]
  - Drug dose omission [Unknown]

NARRATIVE: CASE EVENT DATE: 2016
